FAERS Safety Report 5745852-8 (Version None)
Quarter: 2008Q2

REPORT INFORMATION
  Report Type: 
  Country: None (occurrence: None)
  Receive Date: 20080521
  Receipt Date: 20080512
  Transmission Date: 20081010
  Serious: Yes (Hospitalization, Other)
  Sender: FDA-Public Use
  Company Number: US-AMGEN-QUU278835

PATIENT
  Sex: Female

DRUGS (2)
  1. ENBREL [Suspect]
     Indication: PSORIATIC ARTHROPATHY
     Route: 058
     Dates: start: 20050202
  2. ENBREL [Suspect]
     Indication: PSORIASIS

REACTIONS (6)
  - ANKLE FRACTURE [None]
  - ARTHRALGIA [None]
  - CHILLS [None]
  - FALL [None]
  - JOINT DISLOCATION [None]
  - PYREXIA [None]
